FAERS Safety Report 25167472 (Version 1)
Quarter: 2025Q2

REPORT INFORMATION
  Report Type: Spontaneous
  Country: NL (occurrence: NL)
  Receive Date: 20250407
  Receipt Date: 20250407
  Transmission Date: 20250716
  Serious: Yes (Death, Life-Threatening)
  Sender: TEVA
  Company Number: None

PATIENT
  Age: 64 Year
  Sex: Male
  Weight: 75 kg

DRUGS (2)
  1. MIRTAZAPINE [Suspect]
     Active Substance: MIRTAZAPINE
     Indication: Depression
     Dosage: 30 MG ONCE A DAY, BRAND NAME NOT SPECIFIED
     Route: 048
     Dates: start: 20240920
  2. CITALOPRAM [Suspect]
     Active Substance: CITALOPRAM
     Indication: Depression
     Route: 048
     Dates: start: 20240201, end: 20240920

REACTIONS (4)
  - Depression [Fatal]
  - Weight decreased [Fatal]
  - Completed suicide [Fatal]
  - Memory impairment [Fatal]
